FAERS Safety Report 4524788-4 (Version None)
Quarter: 2004Q4

REPORT INFORMATION
  Report Type: 
  Country: None (occurrence: None)
  Receive Date: 20041213
  Receipt Date: 20041018
  Transmission Date: 20050328
  Serious: Yes (Hospitalization)
  Sender: FDA-Public Use
  Company Number: 200413230JP

PATIENT
  Age: 78 Year
  Sex: Female
  Weight: 44.2 kg

DRUGS (5)
  1. ARAVA [Suspect]
     Route: 048
     Dates: start: 20040101, end: 20041003
  2. PREDNISOLONE [Concomitant]
     Indication: PAIN
     Route: 048
  3. VOLTAREN [Concomitant]
     Indication: PAIN
  4. HALCION [Concomitant]
     Indication: INSOMNIA
     Route: 048
  5. LASIX [Concomitant]
     Indication: CARDIAC FAILURE
     Route: 041
     Dates: start: 20041004, end: 20041007

REACTIONS (12)
  - ALANINE AMINOTRANSFERASE INCREASED [None]
  - ASPARTATE AMINOTRANSFERASE INCREASED [None]
  - BLOOD ALKALINE PHOSPHATASE INCREASED [None]
  - BLOOD CHOLESTEROL INCREASED [None]
  - BLOOD LACTATE DEHYDROGENASE INCREASED [None]
  - CARDIAC FAILURE [None]
  - DRUG INEFFECTIVE [None]
  - GAMMA-GLUTAMYLTRANSFERASE INCREASED [None]
  - LYMPHOCYTE PERCENTAGE DECREASED [None]
  - NEUTROPHIL PERCENTAGE INCREASED [None]
  - OEDEMA PERIPHERAL [None]
  - PROTEIN TOTAL DECREASED [None]
